FAERS Safety Report 4876390-2 (Version None)
Quarter: 2006Q1

REPORT INFORMATION
  Report Type: 
  Country: None (occurrence: None)
  Receive Date: 20060110
  Receipt Date: 20060104
  Transmission Date: 20060701
  Serious: Yes (Hospitalization)
  Sender: FDA-Public Use
  Company Number: PHRM2006FR00455

PATIENT
  Age: 77 Year
  Sex: Male

DRUGS (10)
  1. EXELON [Suspect]
     Dosage: 1.5 MG, BID
     Route: 048
     Dates: start: 20051115, end: 20051210
  2. MUXOL [Suspect]
     Indication: BRONCHITIS
     Route: 048
     Dates: start: 20051205, end: 20051210
  3. JOSACINE [Suspect]
     Indication: BRONCHITIS
     Route: 048
     Dates: start: 20051205, end: 20051210
  4. RHINOFLUIMUCIL [Suspect]
     Indication: BRONCHITIS
     Dates: start: 20051205, end: 20051210
  5. ALDACTAZINE [Concomitant]
     Dosage: UNK, UNK
     Route: 048
  6. TANAKAN [Concomitant]
     Route: 048
     Dates: start: 20050401
  7. XALATAN [Concomitant]
  8. EPINASTINE HYDROCHLORIDE [Concomitant]
  9. DACRYOSERUM [Concomitant]
  10. DOLIPRANE [Concomitant]
     Dosage: PRN
     Route: 048

REACTIONS (6)
  - BRONCHITIS [None]
  - EOSINOPHILIA [None]
  - ERYTHEMA [None]
  - INFLAMMATION [None]
  - PRURITUS GENERALISED [None]
  - WHITE BLOOD CELL COUNT INCREASED [None]
